FAERS Safety Report 25842824 (Version 1)
Quarter: 2025Q3

REPORT INFORMATION
  Report Type: Spontaneous
  Country: GB (occurrence: GB)
  Receive Date: 20250924
  Receipt Date: 20250924
  Transmission Date: 20251021
  Serious: Yes (Life-Threatening, Hospitalization, Other)
  Sender: ELI LILLY AND COMPANY
  Company Number: None

PATIENT
  Sex: Female

DRUGS (1)
  1. MOUNJARO [Suspect]
     Active Substance: TIRZEPATIDE
     Indication: Product used for unknown indication
     Route: 065
     Dates: start: 20240912, end: 20250205

REACTIONS (4)
  - Anorexia nervosa [Not Recovered/Not Resolved]
  - Hypokalaemia [Unknown]
  - Mental impairment [Unknown]
  - Weight decreased [Unknown]
